FAERS Safety Report 4511270-3 (Version None)
Quarter: 2004Q4

REPORT INFORMATION
  Report Type: 
  Country: None (occurrence: None)
  Receive Date: 20041122
  Receipt Date: 20041122
  Transmission Date: 20050328
  Serious: Yes (Other)
  Sender: FDA-Public Use
  Company Number: None

PATIENT
  Age: 45 Year
  Sex: Female
  Weight: 98.8842 kg

DRUGS (1)
  1. CRESTOR [Suspect]
     Indication: HYPERCHOLESTEROLAEMIA
     Dosage: 1 TABLET DAILY
     Dates: start: 20040409, end: 20041119

REACTIONS (3)
  - ASTHENIA [None]
  - MOBILITY DECREASED [None]
  - MYALGIA [None]
